FAERS Safety Report 4525683-7 (Version None)
Quarter: 2004Q4

REPORT INFORMATION
  Report Type: 
  Country: None (occurrence: None)
  Receive Date: 20041116
  Receipt Date: 20041008
  Transmission Date: 20050328
  Serious: No
  Sender: FDA-Public Use
  Company Number: S04-USA-06869-01

PATIENT
  Age: 82 Year
  Sex: Female

DRUGS (1)
  1. NAMENDA [Suspect]

REACTIONS (2)
  - AGITATION [None]
  - HALLUCINATION [None]
